FAERS Safety Report 6034055-8 (Version None)
Quarter: 2009Q1

REPORT INFORMATION
  Report Type: 
  Country: None (occurrence: None)
  Receive Date: 20090112
  Receipt Date: 20081230
  Transmission Date: 20090719
  Serious: Yes (Hospitalization)
  Sender: FDA-Public Use
  Company Number: US-BIOGENIDEC-2008BI033082

PATIENT
  Age: 60 Year
  Sex: Female

DRUGS (14)
  1. TYSABRI [Suspect]
     Indication: MULTIPLE SCLEROSIS
     Route: 042
     Dates: start: 20080116, end: 20080707
  2. PREVACID [Concomitant]
  3. HIPREX [Concomitant]
  4. FLONASE [Concomitant]
  5. FOSAMAX [Concomitant]
  6. SINGULAIR [Concomitant]
  7. ALBUTEROL [Concomitant]
  8. ASMANEX TWISTHALER [Concomitant]
  9. CALCIUM [Concomitant]
  10. ASCORBIC ACID [Concomitant]
  11. DETROL [Concomitant]
  12. MULTI-VITAMINS [Concomitant]
  13. ALDACTONE [Concomitant]
  14. COUMADIN [Concomitant]
     Dates: start: 20071001

REACTIONS (10)
  - ASTHENIA [None]
  - BRONCHITIS [None]
  - FALL [None]
  - FUNGAL SKIN INFECTION [None]
  - INFECTION [None]
  - JOINT INJURY [None]
  - LIMB INJURY [None]
  - MULTIPLE SCLEROSIS RELAPSE [None]
  - SINUSITIS [None]
  - URINARY TRACT INFECTION [None]
